FAERS Safety Report 7518111-0 (Version None)
Quarter: 2011Q2

REPORT INFORMATION
  Report Type: 
  Country: None (occurrence: None)
  Receive Date: 20110531
  Receipt Date: 20110531
  Transmission Date: 20111010
  Serious: Yes (Death)
  Sender: FDA-Public Use
  Company Number: None

PATIENT
  Age: 62 Year
  Sex: Male

DRUGS (7)
  1. MORPHINE [Concomitant]
  2. FENTANYL [Concomitant]
  3. LORAZEPAM [Concomitant]
  4. GABAPENTIN [Concomitant]
  5. REVLIMID [Suspect]
     Indication: MULTIPLE MYELOMA
     Dosage: 5 MG DAILY X14D/21D ORALLY
     Route: 048
     Dates: start: 20100401, end: 20110201
  6. HALOPERIDOL [Concomitant]
  7. OMEPRAZOLE [Concomitant]

REACTIONS (2)
  - CELLULITIS [None]
  - PANCYTOPENIA [None]
